FAERS Safety Report 23914134 (Version 3)
Quarter: 2025Q1

REPORT INFORMATION
  Report Type: Spontaneous
  Country: US (occurrence: US)
  Receive Date: 20240529
  Receipt Date: 20250115
  Transmission Date: 20250409
  Serious: Yes (Life-Threatening, Hospitalization, Other)
  Sender: CIPLA
  Company Number: US-CIPLA LTD.-2024US05167

PATIENT

DRUGS (8)
  1. BUPROPION [Interacting]
     Active Substance: BUPROPION
     Indication: Depression
     Route: 065
  2. PAROXETINE [Interacting]
     Active Substance: PAROXETINE
     Indication: Depression
     Route: 065
  3. METHYLENE BLUE [Interacting]
     Active Substance: METHYLENE BLUE
     Indication: Methaemoglobinaemia
     Route: 042
  4. RITUXIMAB [Concomitant]
     Active Substance: RITUXIMAB
     Indication: Diffuse large B-cell lymphoma
     Route: 065
  5. DEXAMETHASONE [Concomitant]
     Active Substance: DEXAMETHASONE
     Indication: Diffuse large B-cell lymphoma
     Route: 065
  6. CYTARABINE [Concomitant]
     Active Substance: CYTARABINE
     Indication: Diffuse large B-cell lymphoma
     Route: 065
  7. OXALIPLATIN [Concomitant]
     Active Substance: OXALIPLATIN
     Indication: Diffuse large B-cell lymphoma
     Route: 065
  8. DAPSONE [Concomitant]
     Active Substance: DAPSONE
     Indication: Product used for unknown indication
     Route: 065

REACTIONS (3)
  - Serotonin syndrome [Recovered/Resolved]
  - Encephalopathy [Recovered/Resolved]
  - Drug interaction [Recovered/Resolved]
